FAERS Safety Report 4695660-4 (Version None)
Quarter: 2005Q2

REPORT INFORMATION
  Report Type: 
  Country: None (occurrence: None)
  Receive Date: 20050617
  Receipt Date: 20050617
  Transmission Date: 20051028
  Serious: Yes (Other)
  Sender: FDA-Public Use
  Company Number: None

PATIENT
  Sex: Female

DRUGS (6)
  1. FELDENE [Suspect]
     Indication: JOINT SPRAIN
  2. FELDENE [Suspect]
     Indication: PAIN
  3. FELDENE [Suspect]
     Indication: SWELLING
  4. . [Concomitant]
  5. PREDNISONE TAB [Concomitant]
  6. BENADRYL [Concomitant]

REACTIONS (2)
  - PRURITUS [None]
  - RASH [None]
